FAERS Safety Report 5068527-X (Version None)
Quarter: 2006Q3

REPORT INFORMATION
  Report Type: 
  Country: None (occurrence: None)
  Receive Date: 20060802
  Receipt Date: 20051108
  Transmission Date: 20061208
  Serious: Yes (Hospitalization)
  Sender: FDA-Public Use
  Company Number: US-BRISTOL-MYERS SQUIBB COMPANY-13173067

PATIENT
  Age: 60 Year
  Sex: Male
  Weight: 94 kg

DRUGS (6)
  1. COUMADIN [Suspect]
     Dosage: BEGAN 5 MG IN SPRING-2005, ABOUT 2 MONTHS AGO RECEIVED 1 MG TABS INSTEAD OF 5 MG TABS
     Dates: start: 20050101
  2. DIOVAN [Concomitant]
     Dates: start: 20030101
  3. GLUCOPHAGE [Concomitant]
  4. LEXAPRO [Concomitant]
  5. PRAVACHOL [Concomitant]
     Dates: start: 20030101
  6. STARLIX [Concomitant]

REACTIONS (2)
  - THROMBOSIS [None]
  - UNDERDOSE [None]
